FAERS Safety Report 9817097 (Version 1)
Quarter: 2014Q1

REPORT INFORMATION
  Report Type: Report from Study
  Country: KR (occurrence: KR)
  Receive Date: 20140114
  Receipt Date: 20140114
  Transmission Date: 20141002
  Serious: Yes (Death)
  Sender: FDA-Public Use
  Company Number: KR-BAXTER-2014BAX002124

PATIENT
  Sex: 0

DRUGS (3)
  1. HOLOXAN INJ 1000MG [Suspect]
     Indication: NON-HODGKIN^S LYMPHOMA
  2. ETOPOSIDE [Suspect]
     Indication: NON-HODGKIN^S LYMPHOMA
     Route: 042
  3. OXALIPLATIN [Suspect]
     Indication: NON-HODGKIN^S LYMPHOMA
     Route: 042

REACTIONS (1)
  - Disease progression [Fatal]
